FAERS Safety Report 6803689-2 (Version None)
Quarter: 2010Q2

REPORT INFORMATION
  Report Type: 
  Country: None (occurrence: None)
  Receive Date: 20100628
  Receipt Date: 20100628
  Transmission Date: 20101027
  Serious: Yes (Life-Threatening, Hospitalization)
  Sender: FDA-Public Use
  Company Number: None

PATIENT
  Sex: Female
  Weight: 116.5744 kg

DRUGS (1)
  1. ORENCIA [Suspect]
     Indication: RHEUMATOID ARTHRITIS
     Dosage: 1000 MG Q 4 WEEKS IV DRIP
     Route: 041
     Dates: start: 20081007, end: 20100524

REACTIONS (1)
  - NEUROENDOCRINE CARCINOMA OF THE SKIN [None]
